FAERS Safety Report 7263094-4 (Version None)
Quarter: 2011Q1

REPORT INFORMATION
  Report Type: 
  Country: None (occurrence: None)
  Receive Date: 20110130
  Receipt Date: 20101001
  Transmission Date: 20110831
  Serious: No
  Sender: FDA-Public Use
  Company Number: US-ABBOTT-10P-163-0675753-00

PATIENT
  Sex: Female
  Weight: 104.42 kg

DRUGS (8)
  1. SYMBICORT [Concomitant]
     Indication: ASTHMA
     Dosage: 80/4.5    2 PUFFS
  2. FOLIC ACID [Concomitant]
     Indication: VITAMIN SUPPLEMENTATION
  3. HUMIRA [Suspect]
     Indication: PSORIATIC ARTHROPATHY
     Route: 058
  4. SYNTHROID [Concomitant]
     Indication: HYPOTHYROIDISM
     Dates: start: 19800101
  5. MAXAIR [Concomitant]
     Indication: ASTHMA
  6. CLARINEX [Concomitant]
     Indication: ASTHMA
  7. ALBUTEROL [Concomitant]
     Indication: ASTHMA
     Dosage: NEBULIZER
  8. METHOTREXATE [Concomitant]
     Indication: PSORIATIC ARTHROPATHY
     Dosage: 4 TABS

REACTIONS (7)
  - PAIN IN EXTREMITY [None]
  - THROAT IRRITATION [None]
  - SPUTUM DISCOLOURED [None]
  - FATIGUE [None]
  - COUGH [None]
  - DRUG DOSE OMISSION [None]
  - CHEST DISCOMFORT [None]
